FAERS Safety Report 15093543 (Version 2)
Quarter: 2018Q4

REPORT INFORMATION
  Report Type: Report from Study
  Country: FR (occurrence: FR)
  Receive Date: 20180629
  Receipt Date: 20181026
  Transmission Date: 20190204
  Serious: Yes (Death, Other)
  Sender: FDA-Public Use
  Company Number: FR-JAZZ-2018-FR-010175

PATIENT

DRUGS (1)
  1. DEFITELIO [Suspect]
     Active Substance: DEFIBROTIDE SODIUM
     Indication: PROPHYLAXIS
     Dosage: 16.32 MG/KG, QD
     Dates: start: 20160322, end: 20160401

REACTIONS (14)
  - Septic shock [Fatal]
  - Graft versus host disease in skin [Fatal]
  - Renal failure [Unknown]
  - Cardiotoxicity [Fatal]
  - Cystitis haemorrhagic [Unknown]
  - Epstein-Barr virus infection [Fatal]
  - Graft versus host disease in lung [Fatal]
  - Cardiac failure [Unknown]
  - Graft versus host disease in liver [Fatal]
  - Sepsis [Fatal]
  - Pyrexia [Unknown]
  - Aspergillus infection [Fatal]
  - Pseudomonas infection [Fatal]
  - Pulmonary oedema [Unknown]

NARRATIVE: CASE EVENT DATE: 20160324
